FAERS Safety Report 20591404 (Version 2)
Quarter: 2022Q2

REPORT INFORMATION
  Report Type: Spontaneous
  Country: US (occurrence: US)
  Receive Date: 20220314
  Receipt Date: 20220510
  Transmission Date: 20220721
  Serious: Yes (Other)
  Sender: FDA-Public Use
  Company Number: US-GILEAD-2022-0572988

PATIENT
  Age: 50 Year
  Sex: Male

DRUGS (1)
  1. TRUVADA [Suspect]
     Active Substance: EMTRICITABINE\TENOFOVIR DISOPROXIL FUMARATE
     Indication: HIV infection
     Dosage: UNK
     Route: 048
     Dates: start: 201012, end: 201804

REACTIONS (5)
  - Multiple fractures [Unknown]
  - Osteonecrosis [Not Recovered/Not Resolved]
  - Tooth loss [Unknown]
  - Bone density decreased [Unknown]
  - Bone loss [Unknown]

NARRATIVE: CASE EVENT DATE: 20140801
